FAERS Safety Report 4439779-1 (Version None)
Quarter: 2004Q3

REPORT INFORMATION
  Report Type: 
  Country: None (occurrence: None)
  Receive Date: 20040831
  Receipt Date: 20040818
  Transmission Date: 20050211
  Serious: Yes (Hospitalization)
  Sender: FDA-Public Use
  Company Number: 2004CG01630

PATIENT
  Age: 66 Year
  Sex: Male

DRUGS (6)
  1. TENORMIN [Suspect]
     Dosage: 100 MG DAILY PO
     Route: 048
     Dates: start: 20040521, end: 20040525
  2. CATAPRES [Concomitant]
  3. DAPSONE [Concomitant]
  4. ESIDRIX [Concomitant]
  5. PLAVIX [Concomitant]
  6. AMLOR [Concomitant]

REACTIONS (4)
  - ACCIDENTAL OVERDOSE [None]
  - BLOOD PRESSURE SYSTOLIC INCREASED [None]
  - BRADYCARDIA [None]
  - ERYTHEMA [None]
